FAERS Safety Report 13296156 (Version 1)
Quarter: 2017Q1

REPORT INFORMATION
  Report Type: Report from Study
  Country: ZA (occurrence: ZA)
  Receive Date: 20170304
  Receipt Date: 20170304
  Transmission Date: 20170428
  Serious: Yes (Death, Hospitalization)
  Sender: FDA-Public Use
  Company Number: ZA-AMGEN-ZAFSL2017034066

PATIENT
  Age: 41 Year
  Sex: Female

DRUGS (1)
  1. ARANESP [Suspect]
     Active Substance: DARBEPOETIN ALFA
     Indication: CHRONIC KIDNEY DISEASE
     Dosage: 60 MUG, QWK
     Route: 058
     Dates: start: 20130318, end: 20170117

REACTIONS (2)
  - Cardiac failure [Fatal]
  - Malaise [Unknown]

NARRATIVE: CASE EVENT DATE: 20170117
